FAERS Safety Report 9458198 (Version 1)
Quarter: 2013Q3

REPORT INFORMATION
  Report Type: Spontaneous
  Country: US (occurrence: None)
  Receive Date: 20130812
  Receipt Date: 20130812
  Transmission Date: 20140515
  Serious: Yes (Disabling)
  Sender: FDA-Public Use
  Company Number: None

PATIENT
  Age: 39 Year
  Sex: Female
  Weight: 55.79 kg

DRUGS (1)
  1. AVELOX 400MG BAYER HEALTHCARE PHARMACEUTICALS [Suspect]
     Dosage: 1 PILL/400MG 5-7 DAYS ORALLY /047
     Route: 048
     Dates: start: 20130111

REACTIONS (10)
  - Dizziness [None]
  - Abasia [None]
  - Vomiting [None]
  - Asthenia [None]
  - Dehydration [None]
  - Hyperhidrosis [None]
  - Paraesthesia [None]
  - Hypoaesthesia [None]
  - Anosmia [None]
  - Ageusia [None]
